FAERS Safety Report 13216656 (Version 1)
Quarter: 2017Q1

REPORT INFORMATION
  Report Type: Other
  Country: US (occurrence: US)
  Receive Date: 20170210
  Receipt Date: 20170210
  Transmission Date: 20170428
  Serious: No
  Sender: FDA-Public Use
  Company Number: US-ACORDA-ACO_124204_2016

PATIENT
  Sex: Female
  Weight: 69.84 kg

DRUGS (1)
  1. AMPYRA [Suspect]
     Active Substance: DALFAMPRIDINE
     Indication: CLUMSINESS
     Dosage: 10 MG, BID
     Route: 048
     Dates: start: 201406

REACTIONS (3)
  - Drug dose omission [Unknown]
  - Off label use [Unknown]
  - Fall [Unknown]
